FAERS Safety Report 9507369 (Version 1)
Quarter: 2013Q3

REPORT INFORMATION
  Report Type: Report from Study
  Country: JP (occurrence: JP)
  Receive Date: 20130909
  Receipt Date: 20130909
  Transmission Date: 20140515
  Serious: Yes (Death, Life-Threatening, Other)
  Sender: FDA-Public Use
  Company Number: JP-GENZYME-THYM-1004101

PATIENT
  Age: 4 Month
  Sex: Male
  Weight: 6 kg

DRUGS (17)
  1. THYMOGLOBULIN [Suspect]
     Indication: BONE MARROW CONDITIONING REGIMEN
     Dosage: 07 MG, QD
     Route: 065
     Dates: start: 20110721, end: 20110722
  2. FLUDARABINE [Concomitant]
     Indication: BONE MARROW CONDITIONING REGIMEN
     Dosage: UNK
     Route: 065
     Dates: start: 20110725, end: 20110730
  3. ENDOXAN [Concomitant]
     Indication: BONE MARROW CONDITIONING REGIMEN
     Dosage: UNK
     Route: 065
     Dates: start: 20110727, end: 20110730
  4. KYTRIL [Concomitant]
     Indication: PROPHYLAXIS OF NAUSEA AND VOMITING
     Dosage: UNK
     Route: 065
     Dates: start: 20110725, end: 20110730
  5. VICCLOX [Concomitant]
     Indication: ANTIVIRAL PROPHYLAXIS
     Dosage: UNK
     Route: 065
     Dates: start: 20110731, end: 20110925
  6. METHOTREXATE [Concomitant]
     Indication: PROPHYLAXIS AGAINST GRAFT VERSUS HOST DISEASE
     Dosage: UNK
     Route: 065
     Dates: start: 20110802, end: 20110802
  7. METHOTREXATE [Concomitant]
     Dosage: UNK
     Route: 065
     Dates: start: 20110804, end: 20110804
  8. METHOTREXATE [Concomitant]
     Dosage: UNK
     Route: 065
     Dates: start: 20110807, end: 20110807
  9. METHOTREXATE [Concomitant]
     Dosage: UNK
     Route: 065
     Dates: start: 20110913, end: 20110913
  10. URSO [Concomitant]
     Indication: PROPHYLAXIS
     Dosage: UNK
     Route: 065
     Dates: start: 20110720, end: 20110904
  11. SANDIMMUNE [Concomitant]
     Indication: PROPHYLAXIS AGAINST GRAFT VERSUS HOST DISEASE
     Dosage: UNK
     Route: 065
     Dates: start: 20110802, end: 20110909
  12. POLYMYXIN B SULFATE [Concomitant]
     Indication: INFECTION PROPHYLAXIS
     Dosage: UNK
     Route: 065
     Dates: start: 20110721, end: 20111006
  13. BACCIDAL [Concomitant]
     Indication: INFECTION PROPHYLAXIS
     Dosage: UNK
     Route: 065
     Dates: start: 20110721, end: 20111006
  14. UROMITEXAN [Concomitant]
     Indication: PROPHYLAXIS
     Dosage: UNK
     Route: 065
     Dates: start: 20110727, end: 20110730
  15. SOLU MEDROL [Concomitant]
     Indication: PROPHYLAXIS
     Dosage: UNK
     Route: 065
     Dates: start: 20110726
  16. SOLU MEDROL [Concomitant]
     Indication: PROPHYLAXIS AGAINST GRAFT VERSUS HOST DISEASE
  17. SOLU MEDROL [Concomitant]
     Indication: PROPHYLAXIS

REACTIONS (9)
  - Acute graft versus host disease in skin [Unknown]
  - Coagulopathy [Unknown]
  - Pyrexia [Unknown]
  - Familial haemophagocytic lymphohistiocytosis [Fatal]
  - Pulmonary alveolar haemorrhage [Fatal]
  - Histiocytosis haematophagic [Unknown]
  - Hepatic function abnormal [Recovered/Resolved]
  - Hypertension [Unknown]
  - Pyrexia [Unknown]
